FAERS Safety Report 10010668 (Version 2)
Quarter: 2014Q1

REPORT INFORMATION
  Report Type: Report from Study
  Country: CH (occurrence: CH)
  Receive Date: 20140314
  Receipt Date: 20140314
  Transmission Date: 20141002
  Serious: Yes (Death, Hospitalization)
  Sender: FDA-Public Use
  Company Number: CH-ROCHE-1344223

PATIENT
  Age: 81 Year
  Sex: Male

DRUGS (3)
  1. RITUXIMAB [Suspect]
     Indication: B-CELL LYMPHOMA
     Dosage: MOST RECENT DOSE PRIOR TO SAE : 18/JAN/2014? LAST DOSE EPRIOR TO SECOND EPISODE WAS ON 17/FEB/2014
     Route: 042
     Dates: start: 20140118
  2. BENDAMUSTINE HYDROCHLORIDE [Suspect]
     Indication: B-CELL LYMPHOMA
     Dosage: MOST RECENT DOSE PRIOR TO SAE : 19/JAN/2014?LAST DOSE PRIOR TO SECOND EPISODE WAS ON 18/FEB/2014
     Route: 042
     Dates: start: 20140118
  3. LENALIDOMIDE [Suspect]
     Indication: B-CELL LYMPHOMA
     Dosage: MOST RECENT DOSE PRIOR TO SAE : 01/FEB/2014?LAST DOSE PRIOR TO SECOND EPISODE WAS ON 27/FEB/2014
     Route: 048
     Dates: start: 20140118

REACTIONS (2)
  - Abdominal pain [Unknown]
  - Pulmonary embolism [Fatal]
